FAERS Safety Report 4598008-9 (Version None)
Quarter: 2005Q2

REPORT INFORMATION
  Report Type: 
  Country: None (occurrence: None)
  Receive Date: 20050207
  Receipt Date: 20040517
  Transmission Date: 20051028
  Serious: Yes (Hospitalization)
  Sender: FDA-Public Use
  Company Number: 700514

PATIENT
  Sex: Female
  Weight: 68.0396 kg

DRUGS (12)
  1. DIANEAL PD-2 W/ DEXTROSE 1.5% [Suspect]
     Indication: PERITONEAL DIALYSIS
     Dosage: INTRAPERITONEAL
     Route: 033
     Dates: start: 20040416
  2. CLONIDINE [Concomitant]
  3. ACCUPRIL [Concomitant]
  4. PRANDIN [Concomitant]
  5. TRICOR [Concomitant]
  6. NORVASC [Concomitant]
  7. DIOVAN [Concomitant]
  8. PROCRIT [Concomitant]
  9. REGULAR INSULIN [Concomitant]
  10. RENOGEL [Concomitant]
  11. NIFEREX [Concomitant]
  12. FOLTEX [Concomitant]

REACTIONS (2)
  - INTESTINAL PERFORATION [None]
  - PERITONITIS [None]
